FAERS Safety Report 5497389-1 (Version None)
Quarter: 2007Q4

REPORT INFORMATION
  Report Type: 
  Country: None (occurrence: None)
  Receive Date: 20071025
  Receipt Date: 20060116
  Transmission Date: 20080405
  Serious: No
  Sender: FDA-Public Use
  Company Number: US-BRISTOL-MYERS SQUIBB COMPANY-13640982

PATIENT
  Age: 63 Year
  Sex: Female
  Weight: 91 kg

DRUGS (1)
  1. METFORMIN HCL [Suspect]
     Indication: TYPE 2 DIABETES MELLITUS
     Dosage: STARTED OUT AS 500MG ONCE A DAY IN JUL-2005 INCREASED TO TWICE A DAY AUG-2005
     Route: 048
     Dates: start: 20050701, end: 20050801

REACTIONS (1)
  - PAROSMIA [None]
